FAERS Safety Report 9445026 (Version 2)
Quarter: 2013Q3

REPORT INFORMATION
  Report Type: Spontaneous
  Country: JP (occurrence: JP)
  Receive Date: 20130807
  Receipt Date: 20130814
  Transmission Date: 20140515
  Serious: Yes (Other)
  Sender: FDA-Public Use
  Company Number: JP-JNJFOC-20130718873

PATIENT
  Age: 44 Year
  Sex: Male
  Weight: 53 kg

DRUGS (7)
  1. TRAMCET [Suspect]
     Indication: PAIN
     Dosage: 2 PER 1 DAY
     Route: 048
     Dates: start: 20130407, end: 20130423
  2. LOXOPROFEN [Concomitant]
     Route: 048
  3. CONIEL [Concomitant]
     Route: 048
  4. OLMETEC [Concomitant]
     Route: 048
  5. AMLODIPINE [Concomitant]
     Route: 048
  6. REBAMIPIDE [Concomitant]
     Route: 065
  7. NEXIUM [Concomitant]
     Route: 048

REACTIONS (1)
  - Perivascular dermatitis [Recovering/Resolving]
